FAERS Safety Report 21990081 (Version 1)
Quarter: 2023Q1

REPORT INFORMATION
  Report Type: Spontaneous
  Country: GB (occurrence: GB)
  Receive Date: 20230214
  Receipt Date: 20230214
  Transmission Date: 20230418
  Serious: Yes (Other)
  Sender: FDA-Public Use
  Company Number: GB-CURIUM-2023000037

PATIENT
  Sex: Female

DRUGS (1)
  1. SODIUM IODIDE I-131 [Suspect]
     Active Substance: SODIUM IODIDE I-131
     Indication: Product used for unknown indication
     Route: 064

REACTIONS (2)
  - Thyrotoxic crisis [Recovered/Resolved]
  - Tachycardia foetal [Recovered/Resolved]
